FAERS Safety Report 9196570 (Version 1)
Quarter: 2013Q1

REPORT INFORMATION
  Report Type: Spontaneous
  Country: US (occurrence: None)
  Receive Date: 20120709
  Receipt Date: 20120709
  Transmission Date: 20140127
  Serious: Yes (Other)
  Sender: FDA-Public Use
  Company Number: PHHY2011US49918

PATIENT
  Age: 73 Year
  Sex: Female
  Weight: 65.8 kg

DRUGS (5)
  1. GLEEVEC [Suspect]
     Route: 048
     Dates: start: 201011
  2. HYZAAR (HYDROCHLOROTHIAZIDE, LOSARTAN POTASSIUM) [Concomitant]
  3. VICODIN ES (HYDROCODONE BITARTRATE, PARACETAMOL) [Concomitant]
  4. ASPIRIN (E.C) (ACETYLSALICYLIC ACID) [Concomitant]
  5. STOOL SOFTENER (DOCUSATE SODIUM) [Concomitant]

REACTIONS (11)
  - Periorbital oedema [None]
  - Visual acuity reduced [None]
  - Urinary incontinence [None]
  - Nervousness [None]
  - Urinary tract infection [None]
  - Diarrhoea [None]
  - Confusional state [None]
  - Anxiety [None]
  - Gastrooesophageal reflux disease [None]
  - Lacrimation increased [None]
  - Vision blurred [None]
